FAERS Safety Report 10592362 (Version 1)
Quarter: 2014Q4

REPORT INFORMATION
  Report Type: Spontaneous
  Country: GB (occurrence: None)
  Receive Date: 20141117
  Receipt Date: 20141117
  Transmission Date: 20150529
  Serious: Yes (Hospitalization)
  Sender: FDA-Public Use
  Company Number: VAL_03594_2014

PATIENT
  Age: 25 Year
  Sex: Male

DRUGS (2)
  1. METOPROLOL [Suspect]
     Active Substance: METOPROLOL
     Indication: ATRIAL FIBRILLATION
     Dosage: 5 MG INTRAVENOUS BOLUS?
     Route: 040
  2. FLECAINIDE [Suspect]
     Active Substance: FLECAINIDE
     Indication: ATRIAL FIBRILLATION

REACTIONS (7)
  - Brugada syndrome [None]
  - Drug ineffective [None]
  - Ventricular fibrillation [None]
  - Bundle branch block right [None]
  - Pallor [None]
  - Ventricular tachycardia [None]
  - Electrocardiogram ST segment elevation [None]
